FAERS Safety Report 5089590-6 (Version None)
Quarter: 2006Q3

REPORT INFORMATION
  Report Type: 
  Country: None (occurrence: None)
  Receive Date: 20060822
  Receipt Date: 20060808
  Transmission Date: 20061208
  Serious: Yes (Hospitalization)
  Sender: FDA-Public Use
  Company Number: 008252

PATIENT
  Age: 63 Year
  Sex: Male
  Weight: 65.3 kg

DRUGS (6)
  1. CLONAZEPAM [Suspect]
     Indication: GENERALISED ANXIETY DISORDER
     Dosage: 2 TABLET, BID, ORAL
     Route: 048
     Dates: start: 20060724, end: 20060806
  2. OXYCONTIN [Concomitant]
  3. LYRICA [Concomitant]
  4. MS CONTIN [Concomitant]
  5. CYMBALTA [Concomitant]
  6. CLONIDIINE (CLONIDINE) [Concomitant]

REACTIONS (5)
  - BLOOD PRESSURE INCREASED [None]
  - DIZZINESS [None]
  - DYSPNOEA [None]
  - PAIN IN EXTREMITY [None]
  - TACHYCARDIA [None]
